FAERS Safety Report 15545119 (Version 1)
Quarter: 2018Q4

REPORT INFORMATION
  Report Type: Spontaneous
  Country: ES (occurrence: ES)
  Receive Date: 20181024
  Receipt Date: 20181024
  Transmission Date: 20190205
  Serious: Yes (Hospitalization)
  Sender: FDA-Public Use
  Company Number: ES-ACCORD-073818

PATIENT
  Age: 72 Year
  Sex: Female
  Weight: 76 kg

DRUGS (10)
  1. FUROSEMIDE. [Suspect]
     Active Substance: FUROSEMIDE
     Indication: HYPERTENSION
     Route: 048
     Dates: start: 2017, end: 20170615
  2. DILTIAZEM. [Concomitant]
     Active Substance: DILTIAZEM
     Indication: ATRIAL FIBRILLATION
     Route: 048
     Dates: start: 201608
  3. ENOXAPARIN [Concomitant]
     Active Substance: ENOXAPARIN
     Indication: ATRIAL FIBRILLATION
     Route: 065
     Dates: start: 20170531, end: 20170627
  4. CEFEPIME [Interacting]
     Active Substance: CEFEPIME HYDROCHLORIDE
     Indication: ARTHRITIS BACTERIAL
     Route: 042
     Dates: start: 20170606, end: 20170622
  5. VANCOMYCIN [Interacting]
     Active Substance: VANCOMYCIN
     Indication: ARTHRITIS BACTERIAL
     Route: 042
     Dates: start: 20170606, end: 20170615
  6. LOSARTAN. [Interacting]
     Active Substance: LOSARTAN
     Indication: HYPERTENSION
     Route: 048
     Dates: start: 201210, end: 20170615
  7. HYDROCHLOROTHIAZIDE. [Interacting]
     Active Substance: HYDROCHLOROTHIAZIDE
     Indication: HYPERTENSION
     Route: 048
     Dates: start: 20170531, end: 20170615
  8. OMEPRAZOLE. [Concomitant]
     Active Substance: OMEPRAZOLE
     Indication: PROPHYLAXIS AGAINST GASTROINTESTINAL ULCER
     Route: 042
     Dates: start: 20170531
  9. METAMIZOLE SODIUM [Concomitant]
     Active Substance: METAMIZOLE SODIUM
     Indication: ANALGESIC THERAPY
     Route: 048
     Dates: start: 20170608, end: 20170630
  10. IBUPROFEN. [Interacting]
     Active Substance: IBUPROFEN
     Indication: ANALGESIC THERAPY
     Route: 048
     Dates: start: 20170608, end: 20170615

REACTIONS (2)
  - Drug interaction [Unknown]
  - Acute kidney injury [Recovered/Resolved]

NARRATIVE: CASE EVENT DATE: 20170612
